FAERS Safety Report 6462077-1 (Version None)
Quarter: 2009Q4

REPORT INFORMATION
  Report Type: 
  Country: None (occurrence: None)
  Receive Date: 20091123
  Receipt Date: 20091110
  Transmission Date: 20100525
  Serious: Yes (Other)
  Sender: FDA-Public Use
  Company Number: 231745J09USA

PATIENT
  Age: 45 Year
  Sex: Female

DRUGS (6)
  1. REBIF [Suspect]
     Indication: MULTIPLE SCLEROSIS
     Dosage: 44 MCG, 3 IN 1 WEEKS, SUBCUTANEOUS
     Route: 058
     Dates: start: 20050415
  2. UNSPECIFIED BIRTH CONTROL MEDICATION (ORAL CONTRACEPTIVE NOS) [Suspect]
     Indication: CONTRACEPTION
     Dosage: ORAL
     Route: 048
     Dates: start: 19830101, end: 20091001
  3. MECLIZINE [Concomitant]
  4. METOPROLOL (METOPROLOL /00376901/) [Concomitant]
  5. ENALAPRIL (VASERETIC) [Concomitant]
  6. VICODIN [Concomitant]

REACTIONS (3)
  - MENORRHAGIA [None]
  - MENSTRUATION IRREGULAR [None]
  - MUSCLE SPASMS [None]
